FAERS Safety Report 10153014 (Version 2)
Quarter: 2014Q2

REPORT INFORMATION
  Report Type: Spontaneous
  Country: GB (occurrence: GB)
  Receive Date: 20140505
  Receipt Date: 20140619
  Transmission Date: 20141212
  Serious: Yes (Hospitalization)
  Sender: FDA-Public Use
  Company Number: GB-PFIZER INC-2014120403

PATIENT
  Age: 60 Year
  Sex: Male

DRUGS (1)
  1. INSPRA [Suspect]
     Dosage: 25 MG, UNK
     Route: 048

REACTIONS (1)
  - Cardiac disorder [Unknown]
